FAERS Safety Report 7893911-6 (Version None)
Quarter: 2011Q4

REPORT INFORMATION
  Report Type: 
  Country: None (occurrence: None)
  Receive Date: 20111104
  Receipt Date: 20111025
  Transmission Date: 20120403
  Serious: Yes (Other)
  Sender: FDA-Public Use
  Company Number: GB-PFIZER INC-2011161648

PATIENT
  Age: 61 Year
  Sex: Female

DRUGS (18)
  1. RAMIPRIL [Suspect]
     Dosage: 2.5MG, DAILY
     Dates: start: 20101206, end: 20101216
  2. INDAPAMIDE [Concomitant]
     Dosage: 2.5MG,UNK
  3. BENDROFLUMETHIAZIDE [Concomitant]
     Dosage: UNK
     Dates: start: 20110113
  4. DILTIAZEM HCL [Suspect]
     Dosage: 200MG, 1X/DAY
     Route: 048
     Dates: start: 20101006, end: 20101104
  5. SIMVASTATIN [Concomitant]
     Dosage: 40MG, UNK
     Dates: start: 20100913
  6. CHAPARRAL DANDELION BLEND [Concomitant]
     Indication: MIGRAINE
     Dosage: UNK
  7. RAMIPRIL [Suspect]
     Indication: BLOOD PRESSURE
     Dosage: 0.75MG, DAILY
     Dates: start: 20101118, end: 20101206
  8. LOSARTAN [Concomitant]
     Dosage: 25MG HALF A TABLET DAILY
  9. DANDELION [Concomitant]
     Indication: POLYURIA
     Dosage: UNK
  10. SOTALOL [Concomitant]
     Dosage: 40 MG, 2X/DAY
  11. BISOPROLOL FUMARATE [Suspect]
     Dosage: UNK
     Dates: start: 20101001, end: 20101006
  12. DILTIAZEM HCL [Suspect]
     Dosage: UNK
     Dates: start: 20110106
  13. SIMVASTATIN [Concomitant]
     Dosage: 20MG,UNK
  14. ASPIRIN [Concomitant]
     Dosage: 75MG ONCE DAILY
     Dates: start: 20101202
  15. TARAXACUM [Concomitant]
     Dosage: UNK
  16. INDAPAMIDE [Concomitant]
     Dosage: 1.5 MG, UNK
     Dates: start: 20101001
  17. DILTIAZEM HCL [Suspect]
     Dosage: 200MG DAILY
     Route: 048
     Dates: start: 20101006, end: 20101104
  18. MEBEVERINE [Concomitant]
     Dosage: 135 MG, 2X/DAY

REACTIONS (8)
  - DRUG HYPERSENSITIVITY [None]
  - VERTIGO [None]
  - VISION BLURRED [None]
  - BLOOD PRESSURE INCREASED [None]
  - DIZZINESS [None]
  - NAUSEA [None]
  - HYPOAESTHESIA [None]
  - VISUAL IMPAIRMENT [None]
